FAERS Safety Report 10516419 (Version 1)
Quarter: 2014Q4

REPORT INFORMATION
  Report Type: Spontaneous
  Country: US (occurrence: None)
  Receive Date: 20141010
  Receipt Date: 20141010
  Transmission Date: 20150528
  Serious: Yes (Other)
  Sender: FDA-Public Use
  Company Number: None

PATIENT
  Age: 18 Year
  Sex: Female
  Weight: 89.81 kg

DRUGS (1)
  1. COMPAZINE [Suspect]
     Active Substance: PROCHLORPERAZINE MALEATE
     Indication: DRUG WITHDRAWAL SYNDROME
     Dosage: 10 MG, ONCE IN ER, INTO A VEIN
     Route: 042
     Dates: start: 20141006, end: 20141006

REACTIONS (3)
  - Somnolence [None]
  - Headache [None]
  - Muscle twitching [None]

NARRATIVE: CASE EVENT DATE: 20141006
